FAERS Safety Report 24245471 (Version 1)
Quarter: 2024Q3

REPORT INFORMATION
  Report Type: Report from Study
  Country: RO (occurrence: RO)
  Receive Date: 20240824
  Receipt Date: 20240824
  Transmission Date: 20241016
  Serious: Yes (Death, Hospitalization, Other)
  Sender: ABBVIE
  Company Number: RO-ABBVIE-5887393

PATIENT
  Age: 63 Year
  Sex: Female
  Weight: 57 kg

DRUGS (1)
  1. GLECAPREVIR\PIBRENTASVIR [Suspect]
     Active Substance: GLECAPREVIR\PIBRENTASVIR
     Indication: Hepatitis C
     Dosage: 300 MG/120 MG
     Route: 048
     Dates: start: 20240528, end: 20240722

REACTIONS (30)
  - Cardio-respiratory arrest [Fatal]
  - Tongue exfoliation [Unknown]
  - Anuria [Unknown]
  - Dehydration [Unknown]
  - Metabolic acidosis [Unknown]
  - Hypotension [Unknown]
  - Hypotonia [Unknown]
  - Type 2 diabetes mellitus [Unknown]
  - Hepatic cirrhosis [Unknown]
  - Back pain [Unknown]
  - Malnutrition [Unknown]
  - Nausea [Unknown]
  - Synovial cyst [Unknown]
  - Muscle hypertrophy [Unknown]
  - Arthralgia [Unknown]
  - Breath sounds abnormal [Unknown]
  - Rhabdomyolysis [Unknown]
  - General physical health deterioration [Unknown]
  - Gastrointestinal motility disorder [Unknown]
  - Sepsis [Unknown]
  - Fatigue [Unknown]
  - Anaemia [Unknown]
  - Clubbing [Unknown]
  - Hepatorenal syndrome [Unknown]
  - Weight decreased [Unknown]
  - Candida infection [Unknown]
  - Pallor [Unknown]
  - Decreased appetite [Unknown]
  - Hypokinesia [Unknown]
  - Dry skin [Unknown]

NARRATIVE: CASE EVENT DATE: 20240101
